FAERS Safety Report 7596489-X (Version None)
Quarter: 2011Q3

REPORT INFORMATION
  Report Type: 
  Country: None (occurrence: None)
  Receive Date: 20110708
  Receipt Date: 20110628
  Transmission Date: 20111222
  Serious: Yes (Other)
  Sender: FDA-Public Use
  Company Number: US-BIOGENIDEC-2011BI024027

PATIENT
  Sex: Female

DRUGS (3)
  1. AVONEX [Suspect]
     Indication: MULTIPLE SCLEROSIS
     Route: 030
  2. NAPROXEN (ALEVE) [Concomitant]
  3. AVONEX [Suspect]
     Route: 030
     Dates: start: 20100122, end: 20100326

REACTIONS (1)
  - ANAPHYLACTIC SHOCK [None]
